FAERS Safety Report 15397837 (Version 1)
Quarter: 2018Q3

REPORT INFORMATION
  Report Type: Spontaneous
  Country: FR (occurrence: FR)
  Receive Date: 20180918
  Receipt Date: 20180918
  Transmission Date: 20181010
  Serious: Yes (Other)
  Sender: FDA-Public Use
  Company Number: FR-ALLERGAN-1845303US

PATIENT
  Age: 85 Year
  Sex: Male
  Weight: 77 kg

DRUGS (5)
  1. DANATROL [Concomitant]
     Active Substance: DANAZOL
  2. MEROPENEM. [Suspect]
     Active Substance: MEROPENEM
     Indication: INFECTION
     Dosage: 6 G, QD
     Route: 042
     Dates: start: 20180720, end: 20180721
  3. INVANZ [Suspect]
     Active Substance: ERTAPENEM SODIUM
     Indication: INFECTION
     Dosage: 2 G, QD
     Route: 042
     Dates: start: 20180814, end: 20180815
  4. PARACETAMOL [Concomitant]
     Active Substance: ACETAMINOPHEN
  5. CEFTAZIDIME;AVIBACTAM ? BP [Suspect]
     Active Substance: AVIBACTAM SODIUM\CEFTAZIDIME
     Indication: PRODUCT USED FOR UNKNOWN INDICATION
     Dosage: 3 DF, QD
     Route: 042
     Dates: start: 20180721, end: 20180730

REACTIONS (3)
  - Hepatitis [Recovering/Resolving]
  - Condition aggravated [Not Recovered/Not Resolved]
  - Condition aggravated [Recovering/Resolving]

NARRATIVE: CASE EVENT DATE: 20180730
